FAERS Safety Report 6093697-4 (Version None)
Quarter: 2009Q1

REPORT INFORMATION
  Report Type: 
  Country: None (occurrence: None)
  Receive Date: 20090223
  Receipt Date: 20090223
  Transmission Date: 20090719
  Serious: Yes (Other)
  Sender: FDA-Public Use
  Company Number: None

PATIENT
  Sex: Female
  Weight: 48.9885 kg

DRUGS (2)
  1. YAZ [Suspect]
     Indication: CONTRACEPTION
     Dosage: ONE TABLET DAILY PO
     Route: 048
     Dates: start: 20070104, end: 20090220
  2. YAZ [Suspect]
     Indication: DYSMENORRHOEA
     Dosage: ONE TABLET DAILY PO
     Route: 048
     Dates: start: 20070104, end: 20090220

REACTIONS (2)
  - VITAMIN B12 DEFICIENCY [None]
  - WEIGHT DECREASED [None]
